FAERS Safety Report 5595825-3 (Version None)
Quarter: 2008Q1

REPORT INFORMATION
  Report Type: 
  Country: None (occurrence: None)
  Receive Date: 20080118
  Receipt Date: 20080109
  Transmission Date: 20080703
  Serious: Yes (Other)
  Sender: FDA-Public Use
  Company Number: BR-JNJFOC-20080102771

PATIENT

DRUGS (1)
  1. ITRACONAZOLE [Suspect]
     Indication: PARACOCCIDIOIDES INFECTION
     Route: 048

REACTIONS (1)
  - PALPITATIONS [None]
